FAERS Safety Report 5941022-9 (Version None)
Quarter: 2008Q4

REPORT INFORMATION
  Report Type: 
  Country: None (occurrence: None)
  Receive Date: 20081104
  Receipt Date: 20081031
  Transmission Date: 20090506
  Serious: Yes (Hospitalization)
  Sender: FDA-Public Use
  Company Number: US-B.I. PHARMACEUTICALS,INC./RIDGEFIELD-2008-BP-16601BP

PATIENT
  Age: 71 Year
  Sex: Male

DRUGS (2)
  1. CATAPRES-TTS-1 [Suspect]
     Indication: PAIN
     Dosage: .2MG
     Route: 061
     Dates: start: 20060301, end: 20060301
  2. TORPROL XL [Concomitant]
     Indication: HYPERTENSION
     Dosage: 75MG
     Route: 048

REACTIONS (1)
  - LOSS OF CONSCIOUSNESS [None]
